FAERS Safety Report 8461451-1 (Version None)
Quarter: 2012Q2

REPORT INFORMATION
  Report Type: 
  Country: None (occurrence: None)
  Receive Date: 20120323
  Receipt Date: 20111115
  Transmission Date: 20120825
  Serious: Yes (Life-Threatening, Hospitalization, Other)
  Sender: FDA-Public Use
  Company Number: 163-21880-11093009

PATIENT
  Age: 65 Year
  Sex: Male

DRUGS (3)
  1. REVLIMID [Suspect]
     Indication: MULTIPLE MYELOMA
     Dosage: 25 MG, 1 IN 1 D, PO
     Route: 048
     Dates: start: 20110501
  2. AMIODARONE HYDROCHLORIDE [Concomitant]
  3. INSULIN [Concomitant]

REACTIONS (3)
  - VOMITING [None]
  - PNEUMONIA [None]
  - RENAL FAILURE ACUTE [None]
